FAERS Safety Report 13720141 (Version 1)
Quarter: 2017Q3

REPORT INFORMATION
  Report Type: Spontaneous
  Country: CH (occurrence: CH)
  Receive Date: 20170706
  Receipt Date: 20170706
  Transmission Date: 20171127
  Serious: Yes (Life-Threatening, Hospitalization)
  Sender: FDA-Public Use
  Company Number: CH-ALLERGAN-1728092US

PATIENT
  Age: 27 Year
  Sex: Female
  Weight: 77 kg

DRUGS (3)
  1. DEANXIT DRAGEES [Suspect]
     Active Substance: FLUPENTIXOL\MELITRACEN
     Indication: ANXIETY DISORDER
     Route: 048
     Dates: start: 2003, end: 20131118
  2. GYSELLE [Suspect]
     Active Substance: ETHINYL ESTRADIOL\GESTODENE
     Indication: CONTRACEPTION
     Dosage: UNK, UNKNOWN
     Route: 048
     Dates: start: 2009, end: 20131117
  3. CITALOPRAM HYDROBROMIDE - BP [Suspect]
     Active Substance: CITALOPRAM HYDROBROMIDE
     Indication: DEPRESSION
     Dosage: UNK, UNKNOWN
     Route: 048
     Dates: start: 201310

REACTIONS (6)
  - Embolism [Not Recovered/Not Resolved]
  - Electrocardiogram abnormal [Unknown]
  - Pelvic venous thrombosis [Recovering/Resolving]
  - Oedema [Recovering/Resolving]
  - Tachycardia [Unknown]
  - Thrombosis [Unknown]

NARRATIVE: CASE EVENT DATE: 20131117
